FAERS Safety Report 24972334 (Version 1)
Quarter: 2025Q1

REPORT INFORMATION
  Report Type: Report from Study
  Country: US (occurrence: None)
  Receive Date: 20250215
  Receipt Date: 20250215
  Transmission Date: 20250408
  Serious: Yes (Hospitalization, Other)
  Sender: ALEXION PHARMACEUTICALS
  Company Number: US-AstraZeneca-2012SE85176

PATIENT
  Age: 77 Year

DRUGS (12)
  1. NEXIUM [Suspect]
     Active Substance: ESOMEPRAZOLE MAGNESIUM
     Indication: Gastrooesophageal reflux disease
     Dosage: 20 MILLIGRAM, BID
  2. NEXIUM [Suspect]
     Active Substance: ESOMEPRAZOLE MAGNESIUM
     Dosage: 40 MILLIGRAM, QD
  3. METOPROLOL TARTRATE [Suspect]
     Active Substance: METOPROLOL TARTRATE
     Dosage: 50 MILLIGRAM, BID
  4. LANTUS [Concomitant]
     Active Substance: INSULIN GLARGINE
  5. NOVOLOG [Concomitant]
     Active Substance: INSULIN ASPART
  6. SIMVASTATIN [Concomitant]
     Active Substance: SIMVASTATIN
  7. ASPIRIN [Concomitant]
     Active Substance: ASPIRIN
     Dosage: 81 MILLIGRAM, QD
  8. BUMETANIDE [Concomitant]
     Active Substance: BUMETANIDE
     Dosage: 2 MILLIGRAM, QD
  9. IMDUR [Concomitant]
     Active Substance: ISOSORBIDE MONONITRATE
     Dosage: 30 MILLIGRAM, QD
  10. PLAVIX [Concomitant]
     Active Substance: CLOPIDOGREL BISULFATE
     Dosage: 75 MILLIGRAM, QD
  11. REGLAN [Concomitant]
     Active Substance: METOCLOPRAMIDE HYDROCHLORIDE
     Dosage: 10 MILLIGRAM, BID
  12. VICODIN [Concomitant]
     Active Substance: ACETAMINOPHEN\HYDROCODONE BITARTRATE

REACTIONS (34)
  - Chest pain [Unknown]
  - Cataract [Unknown]
  - Myocardial infarction [Unknown]
  - Abdominal distension [Unknown]
  - Gastritis [Unknown]
  - Dyspepsia [Unknown]
  - Intestinal mass [Unknown]
  - Fatigue [Unknown]
  - Weight abnormal [Unknown]
  - Neck pain [Unknown]
  - Deafness [Unknown]
  - Cough [Unknown]
  - Sputum increased [Unknown]
  - Dyspnoea [Unknown]
  - Dyspnoea paroxysmal nocturnal [Unknown]
  - Dysphagia [Unknown]
  - Haemorrhoids [Unknown]
  - Urine flow decreased [Unknown]
  - Hypoaesthesia [Unknown]
  - Joint stiffness [Unknown]
  - Nocturia [Unknown]
  - Arthritis [Unknown]
  - Carpal tunnel syndrome [Unknown]
  - Urinary incontinence [Unknown]
  - Abdominal pain upper [Unknown]
  - Flatulence [Unknown]
  - Eructation [Unknown]
  - Abdominal pain [Unknown]
  - Vision blurred [Unknown]
  - Paraesthesia [Unknown]
  - Constipation [Unknown]
  - Intentional product misuse [Unknown]
  - Drug ineffective [Unknown]
  - Gastrooesophageal reflux disease [Unknown]
